FAERS Safety Report 9320495 (Version 11)
Quarter: 2014Q3

REPORT INFORMATION
  Report Type: Report from Study
  Country: GB (occurrence: GB)
  Receive Date: 20130530
  Receipt Date: 20140923
  Transmission Date: 20150326
  Serious: Yes (Death, Hospitalization)
  Sender: FDA-Public Use
  Company Number: PHHO2013GB006926

PATIENT

DRUGS (13)
  1. CO-TENIDONE [Concomitant]
  2. MIRTAZAPINE. [Concomitant]
     Active Substance: MIRTAZAPINE
  3. NATEGLINIDE. [Concomitant]
     Active Substance: NATEGLINIDE
  4. METFORMIN HYDROCHLORIDE SANDOZ [Suspect]
     Active Substance: METFORMIN HYDROCHLORIDE
     Indication: TYPE 2 DIABETES MELLITUS
     Dosage: 1 G, BID
     Dates: end: 20130522
  5. EXEMESTANE. [Concomitant]
     Active Substance: EXEMESTANE
     Indication: BREAST CANCER
     Dosage: 25 MG, UNK
     Dates: start: 20130511, end: 20130520
  6. FENTANIL [Concomitant]
     Active Substance: FENTANYL
  7. LORAZEPAM. [Concomitant]
     Active Substance: LORAZEPAM
  8. OMEPRAZOLE. [Concomitant]
     Active Substance: OMEPRAZOLE
  9. ORAMORPH SR SUSTAINED RELEASE [Concomitant]
     Active Substance: MORPHINE SULFATE
  10. ANALGESICS [Concomitant]
     Active Substance: UNSPECIFIED INGREDIENT
  11. DABIGATRAN [Concomitant]
     Active Substance: DABIGATRAN
  12. DIURETICS [Concomitant]
     Active Substance: UNSPECIFIED INGREDIENT
  13. AFINITOR [Suspect]
     Active Substance: EVEROLIMUS
     Indication: BREAST CANCER
     Dosage: 10 MG, UNK
     Route: 048
     Dates: start: 20130511, end: 20130520

REACTIONS (5)
  - Renal failure [Fatal]
  - Hypoglycaemia [Recovered/Resolved]
  - Convulsion [Fatal]
  - Malignant neoplasm progression [Fatal]
  - Breast cancer [Fatal]

NARRATIVE: CASE EVENT DATE: 20130521
